FAERS Safety Report 26219315 (Version 1)
Quarter: 2025Q4

REPORT INFORMATION
  Report Type: Other
  Country: EU (occurrence: EU)
  Receive Date: 20251231
  Receipt Date: 20251231
  Transmission Date: 20260117
  Serious: Yes (Congenital Anomaly, Other)
  Sender: Alora Pharma
  Company Number: EU-VERTICAL PHARMACEUTICALS-2025ALO02691

PATIENT
  Sex: Male

DRUGS (1)
  1. ESTRADIOL [Suspect]
     Active Substance: ESTRADIOL
     Indication: Product used for unknown indication
     Dosage: UNK [DURATION: 1 MONTH]
     Route: 064

REACTIONS (7)
  - Foetal exposure during pregnancy [Unknown]
  - Infertility [Not Recovered/Not Resolved]
  - Autoimmune disorder [Not Recovered/Not Resolved]
  - Congenital musculoskeletal disorder [Not Recovered/Not Resolved]
  - Affective disorder [Unknown]
  - Schizophrenia [Unknown]
  - Psychotic disorder [Unknown]
